FAERS Safety Report 20131956 (Version 1)
Quarter: 2021Q4

REPORT INFORMATION
  Report Type: Spontaneous
  Country: US (occurrence: None)
  Receive Date: 20211130
  Receipt Date: 20211130
  Transmission Date: 20220303
  Serious: Yes (Death, Hospitalization)
  Sender: FDA-Public Use
  Company Number: None

PATIENT
  Age: 91 Year
  Sex: Female

DRUGS (1)
  1. BAMLANIVIMAB\ETESEVIMAB [Suspect]
     Active Substance: BAMLANIVIMAB\ETESEVIMAB
     Indication: COVID-19
     Dates: start: 20211116, end: 20211116

REACTIONS (5)
  - Decreased appetite [None]
  - Asthenia [None]
  - Atrial fibrillation [None]
  - Acute respiratory failure [None]
  - Bacteraemia [None]

NARRATIVE: CASE EVENT DATE: 20211122
